FAERS Safety Report 20849991 (Version 1)
Quarter: 2022Q2

REPORT INFORMATION
  Report Type: Spontaneous
  Country: US (occurrence: None)
  Receive Date: 20220518
  Receipt Date: 20220518
  Transmission Date: 20220721
  Serious: Yes (Other)
  Sender: FDA-Public Use
  Company Number: None

PATIENT
  Age: 76 Year
  Sex: Female
  Weight: 52.16 kg

DRUGS (2)
  1. CIPROFLOXACIN [Suspect]
     Active Substance: CIPROFLOXACIN
     Dosage: FREQUENCY : ONCE;?
  2. METRONIDAZOLE [Suspect]
     Active Substance: METRONIDAZOLE
     Dosage: FREQUENCY : ONCE;?

REACTIONS (7)
  - Hypoaesthesia [None]
  - Gait inability [None]
  - Tendon discomfort [None]
  - Headache [None]
  - Poor quality sleep [None]
  - Feeling abnormal [None]
  - Mental impairment [None]

NARRATIVE: CASE EVENT DATE: 20200506
